FAERS Safety Report 5013615-7 (Version None)
Quarter: 2006Q2

REPORT INFORMATION
  Report Type: 
  Country: None (occurrence: None)
  Receive Date: 20060530
  Receipt Date: 20021127
  Transmission Date: 20061013
  Serious: Yes (Hospitalization, Other)
  Sender: FDA-Public Use
  Company Number: JP-GLAXOSMITHKLINE-B0286614A

PATIENT
  Age: 77 Year
  Sex: Female
  Weight: 41.5 kg

DRUGS (9)
  1. VALACYCLOVIR HCL [Suspect]
     Indication: HERPES ZOSTER
     Dosage: 1000MG TWICE PER DAY
     Route: 048
     Dates: start: 20021122, end: 20021123
  2. VALSARTAN [Concomitant]
     Dosage: 40MG PER DAY
     Route: 048
  3. FUROSEMIDE [Concomitant]
     Dosage: 20MG PER DAY
     Route: 048
  4. FERROUS CITRATE [Concomitant]
     Dosage: 100MG PER DAY
     Route: 048
  5. LORNOXICAM [Concomitant]
     Indication: HERPES ZOSTER
     Dosage: 6MG PER DAY
     Route: 048
     Dates: start: 20021122, end: 20021123
  6. OMEPRAZOLE [Concomitant]
     Indication: GASTRIC ULCER
     Dosage: 20MG PER DAY
     Route: 048
  7. TEPRENONE [Concomitant]
     Indication: GASTRIC ULCER
     Dosage: 150MG PER DAY
     Route: 048
  8. MECOBALAMIN [Concomitant]
     Dosage: 750MCG PER DAY
     Route: 048
     Dates: start: 20021122, end: 20021123
  9. AZULENE [Concomitant]
     Indication: HERPES ZOSTER
     Route: 061
     Dates: start: 20021122, end: 20021123

REACTIONS (11)
  - BLOOD CREATININE INCREASED [None]
  - BLOOD UREA INCREASED [None]
  - DECREASED APPETITE [None]
  - DEPRESSED LEVEL OF CONSCIOUSNESS [None]
  - DYSARTHRIA [None]
  - FALL [None]
  - INCOHERENT [None]
  - LACERATION [None]
  - NAUSEA [None]
  - RENAL FAILURE [None]
  - TOXIC INDUCED ENCEPHALOPATHY [None]
